FAERS Safety Report 6833745-4 (Version None)
Quarter: 2010Q3

REPORT INFORMATION
  Report Type: 
  Country: None (occurrence: None)
  Receive Date: 20100712
  Receipt Date: 20070402
  Transmission Date: 20110219
  Serious: Yes (Other)
  Sender: FDA-Public Use
  Company Number: US-PFIZER INC-2007027272

PATIENT
  Sex: Female
  Weight: 68.9 kg

DRUGS (10)
  1. CHANTIX [Suspect]
     Indication: SMOKING CESSATION THERAPY
     Dates: start: 20070326
  2. EFFEXOR [Concomitant]
     Indication: MENTAL DISORDER
  3. WELLBUTRIN [Concomitant]
     Indication: MENTAL DISORDER
  4. VITAMIN C [Concomitant]
  5. SEROQUEL [Concomitant]
     Indication: MENTAL DISORDER
  6. VALIUM [Concomitant]
     Indication: CEREBRAL PALSY
  7. VISTARIL [Concomitant]
  8. GLUCOPHAGE [Concomitant]
     Indication: DIABETES MELLITUS
  9. ATIVAN [Concomitant]
     Indication: ANXIETY
     Dosage: ONE EVERY 8 HOURS
  10. VITAMINS [Concomitant]

REACTIONS (8)
  - ABDOMINAL PAIN UPPER [None]
  - ANXIETY [None]
  - DYSGEUSIA [None]
  - FEAR [None]
  - HALLUCINATION, AUDITORY [None]
  - NAUSEA [None]
  - NIGHTMARE [None]
  - PAROSMIA [None]
